FAERS Safety Report 26064520 (Version 2)
Quarter: 2025Q4

REPORT INFORMATION
  Report Type: Report from Study
  Country: KR (occurrence: KR)
  Receive Date: 20251119
  Receipt Date: 20251210
  Transmission Date: 20260117
  Serious: Yes (Hospitalization)
  Sender: BRISTOL-MYERS SQUIBB COMPANY
  Company Number: KR-BRISTOL-MYERS SQUIBB COMPANY-2025-153342

PATIENT
  Age: 62 Year
  Sex: Female
  Weight: 68 kg

DRUGS (13)
  1. CAMZYOS [Suspect]
     Active Substance: MAVACAMTEN
     Indication: Hypertrophic cardiomyopathy
     Dosage: QD (ONCE DAILY)
     Route: 048
     Dates: start: 20250312, end: 20250408
  2. CAMZYOS [Suspect]
     Active Substance: MAVACAMTEN
     Dosage: QD (ONCE DAILY)
     Route: 048
     Dates: start: 20250409, end: 20250506
  3. CAMZYOS [Suspect]
     Active Substance: MAVACAMTEN
     Dosage: QD (ONCE DAILY)
     Route: 048
     Dates: start: 20250507, end: 20250824
  4. CAMZYOS [Suspect]
     Active Substance: MAVACAMTEN
     Route: 048
     Dates: start: 20250825, end: 20251108
  5. ARAPHEN [Concomitant]
     Indication: Plantar fasciitis
     Dosage: QD (ONCE DAILY), 1 TABLET
     Route: 048
     Dates: start: 202503
  6. CELEMIN [Concomitant]
     Indication: Plantar fasciitis
     Dosage: QD (ONCE DAILY)
     Route: 048
     Dates: start: 202503
  7. DUKARB [Concomitant]
     Indication: Hypertension
     Dosage: QD (ONCE DAILY) 30/5 MG
     Route: 048
     Dates: start: 20250604, end: 20251118
  8. ENTELON [Concomitant]
     Indication: Plantar fasciitis
     Dosage: QD (ONCE DAILY)
     Route: 048
     Dates: start: 202503
  9. ESODUO-S [Concomitant]
     Indication: Product used for unknown indication
     Dosage: 20/700 MILLIGRAM QD (ONCE DAILY)
     Route: 048
     Dates: start: 20250326, end: 20251118
  10. VASTINAN MR [Concomitant]
     Indication: Cardiac failure
     Dosage: QD (ONCE A DAY)
     Route: 048
     Dates: start: 20250924
  11. CARVEDILOL [Concomitant]
     Active Substance: CARVEDILOL
     Indication: Product used for unknown indication
     Dosage: BID (TWICE A DAY)
     Route: 048
     Dates: start: 20250507, end: 20251118
  12. CARVEDILOL [Concomitant]
     Active Substance: CARVEDILOL
     Dosage: BID (TWICE A DAY)
     Route: 048
     Dates: start: 20250113, end: 20250506
  13. CARVEDILOL [Concomitant]
     Active Substance: CARVEDILOL
     Dosage: BID (TWICE A DAY)
     Route: 048
     Dates: start: 20251119

REACTIONS (3)
  - Dyspnoea [Recovering/Resolving]
  - Orthopnoea [Unknown]
  - Dyspnoea exertional [Unknown]

NARRATIVE: CASE EVENT DATE: 20251001
